FAERS Safety Report 8968158 (Version 1)
Quarter: 2012Q4

REPORT INFORMATION
  Report Type: Spontaneous
  Country: US (occurrence: None)
  Receive Date: 20121214
  Receipt Date: 20121214
  Transmission Date: 20130627
  Serious: Yes (Hospitalization)
  Sender: FDA-Public Use
  Company Number: None

PATIENT
  Age: 85 Year
  Sex: Female
  Weight: 87.2 kg

DRUGS (5)
  1. DECITABINE [Suspect]
     Indication: MDS
     Route: 058
     Dates: start: 20110110, end: 20110615
  2. CIPRO [Concomitant]
  3. LISIONOPRIL [Concomitant]
  4. AMLODIPINE [Concomitant]
  5. TYLENOL [Concomitant]

REACTIONS (5)
  - Respirovirus test positive [None]
  - Dyspnoea [None]
  - Hypertension [None]
  - White blood cell count decreased [None]
  - Neutrophil count decreased [None]
